FAERS Safety Report 7984236-9 (Version None)
Quarter: 2011Q4

REPORT INFORMATION
  Report Type: 
  Country: None (occurrence: None)
  Receive Date: 20111216
  Receipt Date: 20111208
  Transmission Date: 20120403
  Serious: Yes (Other)
  Sender: FDA-Public Use
  Company Number: US-BAYER-200940603NA

PATIENT
  Age: 57 Year
  Sex: Male
  Weight: 134 kg

DRUGS (25)
  1. ALLOPURINOL [Concomitant]
     Dosage: 100 MG, QD
  2. HEPARIN [Concomitant]
     Dosage: 50,000 UNITS
     Route: 042
     Dates: start: 20050526, end: 20050526
  3. DOBUTAMINE HCL [Concomitant]
     Dosage: UNK
     Route: 042
     Dates: start: 20050526
  4. INSULIN [Concomitant]
     Dosage: UNK
     Route: 042
     Dates: start: 20050526
  5. CEFAZOLIN [Concomitant]
     Dosage: UNK
     Route: 042
     Dates: start: 20050526
  6. MANNITOL [Concomitant]
     Dosage: 12.5 GRAMS
     Dates: start: 20050526, end: 20050526
  7. TRASYLOL [Suspect]
     Indication: MITRAL VALVE REPAIR
     Dosage: 100ML VIA CARDIOPULMONARY BYPASS
     Dates: start: 20050621
  8. AVAPRO [Concomitant]
     Dosage: 150 MG, QD
  9. DOPAMINE HCL [Concomitant]
     Route: 042
  10. TRASYLOL [Suspect]
     Indication: MITRAL VALVE REPLACEMENT
     Dosage: 70CC, FOLLOWED BY INFUSION
     Route: 042
     Dates: start: 20050526, end: 20050526
  11. IMDUR [Concomitant]
     Dosage: 30 MG, QD
  12. TRASYLOL [Suspect]
     Indication: CARDIAC OPERATION
     Dosage: 200ML PUMP PRIME
  13. COLCHICINE [Concomitant]
     Dosage: 0.6 MG, QD
  14. EPINEPHRINE [Concomitant]
     Dosage: UNK
     Route: 042
     Dates: start: 20050526
  15. COUMADIN [Concomitant]
     Dosage: 5MG FOUR TIMES A WEEK
  16. COREG [Concomitant]
     Dosage: 25 MG, BID
  17. GLIPIZIDE [Concomitant]
     Dosage: 5 MG, QD
  18. DEMEDEX [Concomitant]
     Dosage: 40 MG, BID
  19. PROTAMINE SULFATE [Concomitant]
     Dosage: 50
     Route: 042
     Dates: start: 20050526
  20. RED BLOOD CELLS [Concomitant]
     Dosage: UNK
     Dates: start: 20050526
  21. TRASYLOL [Suspect]
     Indication: VALVULOPLASTY CARDIAC
  22. VICODIN [Concomitant]
     Dosage: 7.5/750MG AS NEEDED
  23. TRAMADOL HCL [Concomitant]
     Dosage: 50 MG AS NEEDED
  24. NITROGLYCERIN [Concomitant]
     Route: 042
  25. FENTANYL [Concomitant]
     Dosage: UNK
     Route: 042
     Dates: start: 20050526

REACTIONS (12)
  - RENAL IMPAIRMENT [None]
  - UNEVALUABLE EVENT [None]
  - STRESS [None]
  - ANXIETY [None]
  - PAIN [None]
  - RENAL INJURY [None]
  - FEAR [None]
  - INJURY [None]
  - ANHEDONIA [None]
  - PSYCHOLOGICAL TRAUMA [None]
  - EMOTIONAL DISTRESS [None]
  - RENAL FAILURE [None]
